FAERS Safety Report 23205909 (Version 1)
Quarter: 2023Q4

REPORT INFORMATION
  Report Type: Report from Study
  Country: FR (occurrence: FR)
  Receive Date: 20231120
  Receipt Date: 20231120
  Transmission Date: 20240110
  Serious: Yes (Other)
  Sender: FDA-Public Use
  Company Number: FR-JNJFOC-20231076358

PATIENT
  Age: 58 Year
  Sex: Male

DRUGS (5)
  1. BORTEZOMIB [Suspect]
     Active Substance: BORTEZOMIB
     Indication: Plasma cell myeloma
     Dosage: 1.3 MILLIGRAM/SQ. METER (2 DOSES/WEEK 2 WEEK(S)/CYCLE 21-DAY CYCLE FROM CYCLE 3)
     Route: 065
  2. DEXAMETHASONE [Suspect]
     Active Substance: DEXAMETHASONE
     Indication: Plasma cell myeloma
     Dosage: 20 MILLIGRAM (2 DOSES/WEEK 4 WEEK(S)/CYCLE CYCLE 21 DAYS FROM CYCLE 3)
     Route: 065
  3. THALIDOMIDE [Suspect]
     Active Substance: THALIDOMIDE
     Indication: Plasma cell myeloma
     Dosage: 100 MILLIGRAM (7 DOSE(S)/WEEK 21 DAY CYCLE FROM CYCLE 3)
     Route: 065
  4. DARATUMUMAB [Suspect]
     Active Substance: DARATUMUMAB
     Indication: Plasma cell myeloma
     Dosage: 1800 MILLIGRAM (1 DOSE(S)/WEEK 4 WEEK(S)/CYCLE 21 DAY CYCLE FROM CYCLE 3)
     Route: 065
  5. MELPHALAN [Suspect]
     Active Substance: MELPHALAN
     Indication: Plasma cell myeloma
     Dosage: 1 MILLIGRAM (BEFORE AUTOGRAFT MAINTENANCE: PROTOCOL 7 DOSES/WEEK 3 WEEK(S)/CYCLE)
     Route: 065

REACTIONS (1)
  - Sepsis [Unknown]
